FAERS Safety Report 4525156-1 (Version None)
Quarter: 2004Q4

REPORT INFORMATION
  Report Type: 
  Country: None (occurrence: None)
  Receive Date: 20041210
  Receipt Date: 20041129
  Transmission Date: 20050328
  Serious: Yes (Death, Hospitalization)
  Sender: FDA-Public Use
  Company Number: HQWYE718001DEC04

PATIENT
  Age: 59 Year
  Sex: Male
  Weight: 122.58 kg

DRUGS (4)
  1. CORDARONE [Suspect]
     Indication: ATRIAL FIBRILLATION
     Dosage: SEE IMAGE
     Route: 048
     Dates: start: 20020826, end: 20020901
  2. CORDARONE [Suspect]
     Indication: ATRIAL FIBRILLATION
     Dosage: SEE IMAGE
     Route: 048
     Dates: start: 20020901, end: 20030201
  3. DRUG USED IN DIABETES (DRUG USED IN DIABETES) [Concomitant]
  4. CARDIAC THERAPY (CARDIAC THERAPY) [Concomitant]

REACTIONS (13)
  - BEDRIDDEN [None]
  - CARDIAC ARREST [None]
  - CARDIAC DISORDER [None]
  - DRUG TOXICITY [None]
  - EPISTAXIS [None]
  - HAEMOPTYSIS [None]
  - PNEUMONIA [None]
  - PULMONARY FIBROSIS [None]
  - PULMONARY OEDEMA [None]
  - PULMONARY TOXICITY [None]
  - SEVERE ACUTE RESPIRATORY SYNDROME [None]
  - THERAPY NON-RESPONDER [None]
  - WEIGHT FLUCTUATION [None]
